FAERS Safety Report 21516200 (Version 1)
Quarter: 2022Q4

REPORT INFORMATION
  Report Type: Report from Study
  Country: US (occurrence: US)
  Receive Date: 20221027
  Receipt Date: 20221027
  Transmission Date: 20230112
  Serious: Yes (Other)
  Sender: FDA-Public Use
  Company Number: US-ABBVIE-4174855

PATIENT
  Sex: Female

DRUGS (2)
  1. HUMIRA [Suspect]
     Active Substance: ADALIMUMAB
     Indication: Rheumatoid arthritis
     Dosage: HUMIRA CF PEN
     Route: 058
  2. METHOTREXATE [Suspect]
     Active Substance: METHOTREXATE
     Indication: Product used for unknown indication
     Route: 065
     Dates: end: 202210

REACTIONS (9)
  - Hip surgery [Unknown]
  - Chronic kidney disease [Unknown]
  - Oral candidiasis [Recovering/Resolving]
  - Tongue blistering [Unknown]
  - Bronchitis [Unknown]
  - Urinary tract infection [Unknown]
  - Gingival blister [Unknown]
  - Vaccination site erythema [Not Recovered/Not Resolved]
  - Alopecia [Unknown]

NARRATIVE: CASE EVENT DATE: 20220801
